FAERS Safety Report 17297743 (Version 2)
Quarter: 2020Q1

REPORT INFORMATION
  Report Type: Spontaneous
  Country: DE (occurrence: DE)
  Receive Date: 20200121
  Receipt Date: 20200205
  Transmission Date: 20200409
  Serious: Yes (Other)
  Sender: FDA-Public Use
  Company Number: NVSC2020DE012007

PATIENT
  Sex: Female

DRUGS (3)
  1. PALBOCICLIB [Concomitant]
     Active Substance: PALBOCICLIB
     Indication: BREAST CANCER
     Dosage: UNK
     Route: 065
  2. PACLITAXEL. [Suspect]
     Active Substance: PACLITAXEL
     Indication: BREAST CANCER
     Dosage: UNK
     Route: 065
     Dates: start: 201608, end: 201610
  3. LETROZOLE. [Suspect]
     Active Substance: LETROZOLE
     Indication: BREAST CANCER
     Dosage: UNK
     Route: 065

REACTIONS (8)
  - Escherichia infection [Unknown]
  - Rib fracture [Unknown]
  - Drug ineffective [Unknown]
  - Carbohydrate antigen 15-3 increased [Unknown]
  - Metastatic carcinoid tumour [Unknown]
  - Sternal fracture [Unknown]
  - Chest injury [Unknown]
  - Fall [Unknown]

NARRATIVE: CASE EVENT DATE: 201908
